FAERS Safety Report 5642592-0 (Version None)
Quarter: 2008Q1

REPORT INFORMATION
  Report Type: 
  Country: None (occurrence: None)
  Receive Date: 20080227
  Receipt Date: 20080227
  Transmission Date: 20080703
  Serious: Yes (Hospitalization)
  Sender: FDA-Public Use
  Company Number: None

PATIENT
  Sex: Male
  Weight: 97.0698 kg

DRUGS (3)
  1. COGENTIN [Suspect]
     Dosage: 2MG PO TID  (THERAPY DATES: PRIOR TO ADMISSION)
     Route: 048
  2. BENADRYL [Concomitant]
  3. HALDOL [Concomitant]

REACTIONS (2)
  - HEART RATE INCREASED [None]
  - PALPITATIONS [None]
